FAERS Safety Report 8984507 (Version 1)
Quarter: 2012Q4

REPORT INFORMATION
  Report Type: 
  Country: GB (occurrence: GB)
  Receive Date: 20121226
  Receipt Date: 20121226
  Transmission Date: 20130627
  Serious: Yes (Life-Threatening)
  Sender: FDA-Public Use
  Company Number: GB-BRISTOL-MYERS SQUIBB COMPANY-17216920

PATIENT
  Age: 78 Year
  Sex: Female
  Weight: 88 kg

DRUGS (9)
  1. ONGLYZA TABS [Suspect]
     Indication: TYPE 2 DIABETES MELLITUS
     Route: 048
  2. ONDANSETRON [Concomitant]
     Indication: HYPERTENSION
     Dosage: Treatment ongoing
cumulative dosage 21360.03-undefined
     Dates: start: 20090324
  3. OMEPRAZOLE [Concomitant]
     Indication: HIATUS HERNIA
     Dosage: Treatment ongoing
cumulative dosage 60440.833-undefined
     Dates: start: 20040810
  4. BENDROFLUMETHIAZIDE [Concomitant]
     Indication: HYPERTENSION
     Dosage: Treatment ongoing
cumulative dosage 5790.104163-undefined
     Dates: start: 20060717
  5. GLICLAZIDE [Concomitant]
     Indication: TYPE 2 DIABETES MELLITUS
     Dosage: Treatment ongoing
cumulative dosage 415846.6663-undefined
     Dates: start: 20051007
  6. SIMVASTATIN [Concomitant]
     Indication: BLOOD CHOLESTEROL INCREASED
     Dosage: Treatment ongoing
cumulative dosage 98920.03-undefined
     Dates: start: 20060210
  7. METFORMIN [Concomitant]
     Indication: TYPE 2 DIABETES MELLITUS
     Dosage: Treatment ongoing
cumulative dosage 4448.083332-undefined.
     Dates: start: 20061017
  8. ASPIRIN [Concomitant]
     Indication: THROMBOSIS PROPHYLAXIS
     Dosage: Treatment ongoing
cumulative dosage 94128.1253-undefined
     Dates: start: 20090612
  9. METOCLOPRAMIDE [Concomitant]
     Indication: IMPAIRED GASTRIC EMPTYING
     Dosage: Treatment ongoing
cumulative dosage 19740.03-undefined
     Dates: start: 20110130

REACTIONS (3)
  - Hypogammaglobulinaemia [Unknown]
  - Fatigue [Unknown]
  - Dizziness [Unknown]
